FAERS Safety Report 10043982 (Version 1)
Quarter: 2014Q1

REPORT INFORMATION
  Report Type: Spontaneous
  Country: US (occurrence: US)
  Receive Date: 20140328
  Receipt Date: 20140328
  Transmission Date: 20141002
  Serious: No
  Sender: FDA-Public Use
  Company Number: US-MYLANLABS-2013S1013393

PATIENT
  Age: 49 Year
  Sex: Female
  Weight: 60.78 kg

DRUGS (6)
  1. EMSAM (SELEGILINE TRANSDERMAL SYSTEM) [Suspect]
     Indication: DEPRESSION
     Route: 062
  2. SYNTHROID [Concomitant]
     Route: 048
  3. CARISOPRODOL [Concomitant]
     Indication: BACK INJURY
     Route: 048
  4. HYDROCODONE/APAP [Concomitant]
     Indication: BACK INJURY
     Dosage: 10MG/325MG
     Route: 048
  5. PREDNISONE [Concomitant]
     Indication: BACK INJURY
     Dosage: TAPER FOR 12 DAYS
     Route: 048
  6. ROZEREM [Concomitant]
     Indication: INSOMNIA
     Route: 048

REACTIONS (3)
  - Insomnia [Not Recovered/Not Resolved]
  - Injury [Not Recovered/Not Resolved]
  - Incorrect drug administration duration [Recovered/Resolved]
